FAERS Safety Report 8885231 (Version 4)
Quarter: 2013Q2

REPORT INFORMATION
  Report Type: Spontaneous
  Country: US (occurrence: US)
  Receive Date: 20121102
  Receipt Date: 20130618
  Transmission Date: 20140414
  Serious: Yes (Other)
  Sender: FDA-Public Use
  Company Number: US-PFIZER INC-2012271053

PATIENT
  Age: 83 Year
  Sex: Female
  Weight: 54.42 kg

DRUGS (27)
  1. REVATIO [Suspect]
     Indication: PULMONARY HYPERTENSION
     Dosage: 20 MG, 3X/DAY
     Route: 048
  2. LASIX [Concomitant]
     Dosage: 20 MG, UNK
  3. LEVOTHROID [Concomitant]
     Dosage: 150 UG, UNK
  4. LISINOPRIL [Concomitant]
     Dosage: 5 MG, UNK
  5. MEGACE [Concomitant]
     Dosage: 40 MG, 2X/DAY
  6. NEPHRO-VITE [Concomitant]
     Dosage: UNK, 2X/DAY
  7. DIGOXIN [Concomitant]
     Dosage: 0.125 MG, 1X/DAY (MONDAY TO FRIDAY)
  8. PREDNISONE [Concomitant]
     Dosage: 5 MG, UNK
  9. PROTONIX [Concomitant]
     Dosage: 40 MG, UNK
  10. ALLOPURINOL [Concomitant]
     Dosage: 150 MG, UNK
  11. SODIUM BICARBONATE [Concomitant]
     Dosage: 650 MG, 3X/DAY
  12. BYSTOLIC [Concomitant]
     Dosage: 5 MG, UNK
  13. ASPIRIN [Concomitant]
     Dosage: 81 MG, UNK
  14. CALCIUM CARBONATE/ERGOCALCIFEROL [Concomitant]
     Dosage: UNK, 2X/DAY
  15. GABAPENTIN [Concomitant]
     Dosage: 300 MG, UNK
  16. PRAVASTATIN [Concomitant]
     Dosage: 40 MG, UNK
  17. WELCHOL [Concomitant]
     Dosage: 1250 MG (625MG TWO TABLETS), UNK
  18. COUMADINE [Concomitant]
     Dosage: 2.5 MG, UNK
  19. ACIDOPHILUS [Concomitant]
     Dosage: UNK
  20. MYLANTA [Concomitant]
     Dosage: UNK, AS NEEDED
  21. ZOFRAN [Concomitant]
     Indication: NAUSEA
     Dosage: UNK, AS NEEDED
  22. ALBUTEROL [Concomitant]
     Dosage: UNK, 3X/DAY
  23. LUNESTA [Concomitant]
     Indication: ANXIETY
     Dosage: 3 MG, AS NEEDED
  24. LORTAB [Concomitant]
     Indication: PAIN
     Dosage: 500/10 MG, AS NEEDED
  25. CLONIDINE [Concomitant]
     Indication: HYPERTENSION
     Dosage: 2 MG, AS NEEDED
  26. DULCOLAX [Concomitant]
     Indication: CONSTIPATION
     Dosage: UNK, AS NEEDED
  27. OXYGEN [Concomitant]
     Dosage: UNK

REACTIONS (5)
  - Peripheral arterial occlusive disease [Unknown]
  - Poor peripheral circulation [Unknown]
  - Blood count abnormal [Unknown]
  - Abdominal discomfort [Unknown]
  - Diarrhoea [Unknown]
